FAERS Safety Report 16437526 (Version 2)
Quarter: 2019Q2

REPORT INFORMATION
  Report Type: Spontaneous
  Country: US (occurrence: US)
  Receive Date: 20190615
  Receipt Date: 20190622
  Transmission Date: 20190711
  Serious: Yes (Other)
  Sender: FDA-Public Use
  Company Number: US-ACCORD-132484

PATIENT
  Age: 58 Year
  Sex: Female

DRUGS (4)
  1. ALPHA-1-ANTITRYPSIN [Concomitant]
     Active Substance: .ALPHA.1-PROTEINASE INHIBITOR HUMAN
     Dosage: INCREASE THE DOSE DEC-2015
     Dates: start: 201110
  2. MYCOPHENOLIC ACID. [Suspect]
     Active Substance: MYCOPHENOLIC ACID
     Indication: IMMUNOSUPPRESSION
     Dates: start: 201110, end: 201608
  3. TACROLIMUS. [Suspect]
     Active Substance: TACROLIMUS
     Indication: IMMUNOSUPPRESSION
     Dates: start: 201110
  4. PREDNISONE/PREDNISONE ACETATE [Suspect]
     Active Substance: PREDNISONE ACETATE
     Indication: IMMUNOSUPPRESSION
     Dosage: INCREASES IN HER IMMUNOSUPPRESSIVE THERAPY IN DEC-2015,INTERMITTENT STEROIDS
     Dates: start: 201110

REACTIONS (6)
  - Sarcoma of skin [Recovering/Resolving]
  - Respiratory tract infection fungal [Unknown]
  - Bronchiolitis [Unknown]
  - Deep vein thrombosis [Unknown]
  - Respiratory tract infection viral [Unknown]
  - Transplant rejection [Unknown]

NARRATIVE: CASE EVENT DATE: 2016
